FAERS Safety Report 8824763 (Version 1)
Quarter: 2012Q4

REPORT INFORMATION
  Report Type: 
  Country: IN (occurrence: US)
  Receive Date: 20121004
  Receipt Date: 20121004
  Transmission Date: 20130627
  Serious: No
  Sender: FDA-Public Use
  Company Number: US-BAYER-2012-079588

PATIENT
  Age: 46 Year
  Sex: Female

DRUGS (3)
  1. CLIMARA [Suspect]
     Indication: MENOPAUSE
     Dosage: UNK
     Route: 062
     Dates: start: 20120724
  2. LEVOTHYROXINE [Concomitant]
     Dosage: 170 mg, UNK
  3. GLUCOPHAGE [Concomitant]
     Dosage: 500 mg, UNK

REACTIONS (3)
  - Rash [Recovering/Resolving]
  - Skin irritation [Recovering/Resolving]
  - Skin burning sensation [Recovering/Resolving]
